FAERS Safety Report 9128502 (Version 1)
Quarter: 2013Q1

REPORT INFORMATION
  Report Type: Spontaneous
  Country: US (occurrence: US)
  Receive Date: 20130228
  Receipt Date: 20130228
  Transmission Date: 20140127
  Serious: Yes (Other)
  Sender: FDA-Public Use
  Company Number: US-GLAXOSMITHKLINE-A0998827A

PATIENT
  Age: 23 Year
  Sex: Female

DRUGS (2)
  1. IMITREX [Suspect]
     Indication: MIGRAINE
     Dosage: 6MG AS REQUIRED
     Route: 042
     Dates: start: 20121024
  2. NO CONCURRENT MEDICATION [Concomitant]

REACTIONS (2)
  - Heart rate decreased [Unknown]
  - Incorrect route of drug administration [Unknown]
